FAERS Safety Report 8049124-0 (Version None)
Quarter: 2012Q1

REPORT INFORMATION
  Report Type: 
  Country: None (occurrence: None)
  Receive Date: 20120117
  Receipt Date: 20120112
  Transmission Date: 20120608
  Serious: Yes (Other)
  Sender: FDA-Public Use
  Company Number: US-JNJFOC-20120105382

PATIENT
  Age: 30 Year
  Sex: Female

DRUGS (2)
  1. BENADRYL [Suspect]
     Indication: FOOD ALLERGY
     Dosage: FOUR TABLETS
     Route: 048
     Dates: end: 20120112
  2. BENADRYL [Suspect]
     Route: 048

REACTIONS (5)
  - URTICARIA [None]
  - PRURITUS [None]
  - SWELLING [None]
  - THROAT TIGHTNESS [None]
  - OFF LABEL USE [None]
